FAERS Safety Report 9324952 (Version 1)
Quarter: 2013Q2

REPORT INFORMATION
  Report Type: Spontaneous
  Country: US (occurrence: US)
  Receive Date: 20130603
  Receipt Date: 20130603
  Transmission Date: 20140414
  Serious: No
  Sender: FDA-Public Use
  Company Number: US-TEVA-409164USA

PATIENT
  Age: 68 Year
  Sex: Female
  Weight: 69.92 kg

DRUGS (3)
  1. QNASL [Suspect]
     Indication: SINUSITIS
     Dates: start: 201305
  2. CEFDINIR [Concomitant]
     Indication: SINUSITIS
     Dosage: 300 MILLIGRAM DAILY;
  3. MONTELUKAST [Concomitant]
     Indication: SINUS CONGESTION

REACTIONS (2)
  - Burning sensation [Unknown]
  - Paraesthesia [Unknown]
